FAERS Safety Report 8353395-0 (Version None)
Quarter: 2012Q2

REPORT INFORMATION
  Report Type: 
  Country: None (occurrence: None)
  Receive Date: 20120511
  Receipt Date: 20120510
  Transmission Date: 20120825
  Serious: Yes (Other)
  Sender: FDA-Public Use
  Company Number: US-PFIZER INC-2012114613

PATIENT
  Sex: Female
  Weight: 72.562 kg

DRUGS (4)
  1. TYLENOL (CAPLET) [Suspect]
     Indication: HEADACHE
     Dosage: UNK
  2. DOXYCYCLINE [Concomitant]
     Indication: LYMPHANGIOLEIOMYOMATOSIS
     Dosage: 100 MG, DAILY
  3. RAPAMUNE [Suspect]
     Indication: LYMPHANGIOLEIOMYOMATOSIS
     Dosage: 2 MG, DAILY
     Dates: start: 20111208
  4. MEDROXYPROGESTERONE [Concomitant]
     Indication: LYMPHANGIOLEIOMYOMATOSIS
     Dosage: 20 MG,DAILY

REACTIONS (11)
  - DIARRHOEA [None]
  - TENDON PAIN [None]
  - OEDEMA PERIPHERAL [None]
  - RASH [None]
  - HEADACHE [None]
  - ARTHRALGIA [None]
  - SKIN LESION [None]
  - MOUTH ULCERATION [None]
  - OEDEMA [None]
  - DRUG INEFFECTIVE [None]
  - JOINT SWELLING [None]
